FAERS Safety Report 10676074 (Version 1)
Quarter: 2014Q4

REPORT INFORMATION
  Report Type: Spontaneous
  Country: US (occurrence: US)
  Receive Date: 20141225
  Receipt Date: 20141225
  Transmission Date: 20150529
  Serious: Yes (Death, Hospitalization, Other)
  Sender: FDA-Public Use
  Company Number: PHHY2014US162186

PATIENT
  Age: 44 Year
  Sex: Female

DRUGS (18)
  1. THIAMINE [Suspect]
     Active Substance: THIAMINE
     Indication: VITAMIN B1 DECREASED
     Route: 065
  2. 5-FLUOROURACIL [Suspect]
     Active Substance: FLUOROURACIL
     Indication: COLON CANCER
     Route: 065
  3. LEUCOVORIN [Suspect]
     Active Substance: LEUCOVORIN
     Indication: LACTIC ACIDOSIS
     Route: 065
  4. LEUCOVORIN [Suspect]
     Active Substance: LEUCOVORIN
     Indication: COLON CANCER
  5. PANITUMUMAB [Suspect]
     Active Substance: PANITUMUMAB
     Indication: LACTIC ACIDOSIS
     Route: 065
  6. 5-FLUOROURACIL [Suspect]
     Active Substance: FLUOROURACIL
     Indication: LACTIC ACIDOSIS
  7. CAPECITABINE. [Suspect]
     Active Substance: CAPECITABINE
     Indication: LACTIC ACIDOSIS
  8. BEVACIZUMAB [Suspect]
     Active Substance: BEVACIZUMAB
     Indication: LACTIC ACIDOSIS
  9. PANITUMUMAB [Suspect]
     Active Substance: PANITUMUMAB
     Indication: COLON CANCER
  10. IRINOTECAN [Suspect]
     Active Substance: IRINOTECAN
     Indication: LACTIC ACIDOSIS
  11. HYDROCHLOROTHIAZIDE. [Suspect]
     Active Substance: HYDROCHLOROTHIAZIDE
     Indication: LACTIC ACIDOSIS
     Route: 065
  12. IRINOTECAN [Suspect]
     Active Substance: IRINOTECAN
     Indication: COLON CANCER
     Route: 065
  13. FOLFOX [Suspect]
     Active Substance: FLUOROURACIL\LEUCOVORIN CALCIUM\OXALIPLATIN
     Indication: COLON CANCER
     Route: 065
  14. FOLFOX [Suspect]
     Active Substance: FLUOROURACIL\LEUCOVORIN CALCIUM\OXALIPLATIN
     Indication: LACTIC ACIDOSIS
     Route: 065
  15. CAPECITABINE. [Suspect]
     Active Substance: CAPECITABINE
     Indication: COLON CANCER
     Route: 065
  16. STARCH [Suspect]
     Active Substance: STARCH
     Indication: LACTIC ACIDOSIS
     Route: 065
  17. BICARBONATE [Suspect]
     Active Substance: BICARBONATE ION
     Indication: LACTIC ACIDOSIS
     Route: 041
  18. BEVACIZUMAB [Suspect]
     Active Substance: BEVACIZUMAB
     Indication: COLON CANCER
     Route: 065

REACTIONS (11)
  - Hypersensitivity [Unknown]
  - Bone lesion [Unknown]
  - Drug ineffective [Unknown]
  - Tachycardia [Unknown]
  - Colon cancer metastatic [Unknown]
  - Waist circumference increased [Unknown]
  - Death [Fatal]
  - Malignant neoplasm progression [Unknown]
  - Dyspnoea [Unknown]
  - Lactic acidosis [Unknown]
  - Metastases to peritoneum [Unknown]
